FAERS Safety Report 5977384-6 (Version None)
Quarter: 2008Q4

REPORT INFORMATION
  Report Type: 
  Country: None (occurrence: None)
  Receive Date: 20081203
  Receipt Date: 20081126
  Transmission Date: 20090506
  Serious: Yes (Hospitalization, Other)
  Sender: FDA-Public Use
  Company Number: PHHY2008KR30073

PATIENT

DRUGS (1)
  1. EXFORGE [Suspect]

REACTIONS (2)
  - CALCULUS BLADDER [None]
  - CEREBROVASCULAR ACCIDENT [None]
